FAERS Safety Report 7141895-0 (Version None)
Quarter: 2010Q4

REPORT INFORMATION
  Report Type: 
  Country: None (occurrence: None)
  Receive Date: 20101207
  Receipt Date: 20101202
  Transmission Date: 20110411
  Serious: No
  Sender: FDA-Public Use
  Company Number: BR-ROCHE-746123

PATIENT
  Sex: Female
  Weight: 64 kg

DRUGS (3)
  1. ROACUTAN [Suspect]
     Indication: ACNE
     Dosage: 20 MG EVERY OTHER DAY FOR THREE MONTHS IN A YEAR
     Route: 048
     Dates: start: 20070101
  2. ROACUTAN [Suspect]
     Dosage: 20 MG EVERY OTHER DAY FOR THREE MONTHS IN A YEAR
     Route: 048
     Dates: start: 20100701, end: 20100901
  3. YASMIN [Suspect]
     Indication: CONTRACEPTION
     Route: 048

REACTIONS (2)
  - NO ADVERSE EVENT [None]
  - PREGNANCY [None]
